FAERS Safety Report 8343231-0 (Version None)
Quarter: 2012Q2

REPORT INFORMATION
  Report Type: 
  Country: None (occurrence: None)
  Receive Date: 20120508
  Receipt Date: 20120423
  Transmission Date: 20120825
  Serious: Yes (Death, Hospitalization, Other)
  Sender: FDA-Public Use
  Company Number: MX-RANBAXY-2012RR-55807

PATIENT
  Age: 87 Year
  Sex: Female

DRUGS (9)
  1. CANDESARTAN CILEXETIL/HYDROCHLOROTHIAZIDE [Suspect]
     Indication: PRODUCT USED FOR UNKNOWN INDICATION
     Dosage: 16/12.5 MG/DAY
     Route: 065
  2. ACENOCOUMAROL [Suspect]
     Indication: ATRIAL FIBRILLATION
     Route: 065
  3. REPAGLINIDE [Suspect]
     Indication: PRODUCT USED FOR UNKNOWN INDICATION
     Dosage: 2 MG, TID
     Route: 065
  4. TORSEMIDE [Suspect]
     Indication: PRODUCT USED FOR UNKNOWN INDICATION
     Dosage: 5 MG/DAY
     Route: 065
  5. NIFEDIPINE [Suspect]
     Indication: PRODUCT USED FOR UNKNOWN INDICATION
     Dosage: 30 MG/DAY
     Route: 065
  6. ACENOCOUMAROL [Suspect]
     Indication: PULMONARY ARTERIAL PRESSURE
  7. OMEPRAZOLE [Suspect]
     Indication: PRODUCT USED FOR UNKNOWN INDICATION
     Dosage: 20 MG/DAY
     Route: 065
  8. METFORMIN HCL [Suspect]
     Indication: TYPE 2 DIABETES MELLITUS
     Dosage: 850 MG/ 8H
     Route: 065
  9. DEFLAZACORT [Suspect]
     Indication: PRODUCT USED FOR UNKNOWN INDICATION
     Dosage: 6 MG/DAY
     Route: 065

REACTIONS (2)
  - LACTIC ACIDOSIS [None]
  - DRUG INTERACTION [None]
